FAERS Safety Report 12147049 (Version 9)
Quarter: 2016Q3

REPORT INFORMATION
  Report Type: Report from Study
  Country: US (occurrence: US)
  Receive Date: 20160304
  Receipt Date: 20160930
  Transmission Date: 20161109
  Serious: Yes (Hospitalization, Other)
  Sender: FDA-Public Use
  Company Number: US-ACTELION-A-NJ2016-130659

PATIENT
  Age: 39 Year
  Sex: Female

DRUGS (8)
  1. COUMADIN [Concomitant]
     Active Substance: WARFARIN SODIUM
  2. TRACLEER [Suspect]
     Active Substance: BOSENTAN
     Indication: PULMONARY ARTERIAL HYPERTENSION
     Dosage: 125 MG, BID
     Route: 048
     Dates: start: 20120410
  3. REMODULIN [Suspect]
     Active Substance: TREPROSTINIL
     Dosage: UNK
     Route: 042
  4. ADEMPAS [Concomitant]
     Active Substance: RIOCIGUAT
     Dosage: 1.5 MG, UNK
     Dates: start: 20160725
  5. REVATIO [Concomitant]
     Active Substance: SILDENAFIL CITRATE
  6. ADEMPAS [Concomitant]
     Active Substance: RIOCIGUAT
     Dosage: 1 MG, UNK
     Dates: start: 20160725
  7. REMODULIN [Suspect]
     Active Substance: TREPROSTINIL
     Indication: PRODUCT USED FOR UNKNOWN INDICATION
     Route: 058
  8. TRACLEER [Suspect]
     Active Substance: BOSENTAN
     Dosage: 125 MG, BID
     Route: 048

REACTIONS (30)
  - Feeling hot [Unknown]
  - Joint swelling [Unknown]
  - Ascites [Unknown]
  - Tremor [Unknown]
  - Catheter site rash [Unknown]
  - Arthralgia [Unknown]
  - Syncope [Unknown]
  - Constipation [Unknown]
  - Oedema peripheral [Unknown]
  - Flushing [Unknown]
  - Chest pain [Unknown]
  - Palpitations [Unknown]
  - Fall [Unknown]
  - Bronchitis [Unknown]
  - Fatigue [Recovering/Resolving]
  - Asthenia [Unknown]
  - Contusion [Unknown]
  - Dizziness [Recovering/Resolving]
  - Pneumonia [Unknown]
  - Catheter site infection [Unknown]
  - Dermatitis contact [Unknown]
  - Pain [Recovered/Resolved]
  - Seizure [Unknown]
  - Feeling abnormal [Unknown]
  - Dyspnoea [Unknown]
  - Pain in jaw [Unknown]
  - Suprapubic pain [Unknown]
  - Nausea [Recovering/Resolving]
  - Diarrhoea [Unknown]
  - Headache [Recovering/Resolving]

NARRATIVE: CASE EVENT DATE: 201512
